FAERS Safety Report 8916028 (Version 1)
Quarter: 2012Q4

REPORT INFORMATION
  Report Type: 
  Country: US (occurrence: US)
  Receive Date: 20121119
  Receipt Date: 20121119
  Transmission Date: 20130627
  Serious: No
  Sender: FDA-Public Use
  Company Number: US-ASTRAZENECA-2011SE18748

PATIENT
  Age: 65 Year
  Sex: Female

DRUGS (8)
  1. SEROQUEL [Suspect]
     Indication: SLEEP DISORDER
     Route: 048
     Dates: start: 2010
  2. NEXIUM [Concomitant]
     Route: 048
  3. GLUCOTROL [Concomitant]
  4. ACTOS [Concomitant]
  5. ENALAPRIL [Concomitant]
  6. LIPITOR [Concomitant]
  7. ALLEGRA [Concomitant]
     Indication: SINUS DISORDER
  8. PAXIL [Concomitant]

REACTIONS (3)
  - Diabetes mellitus inadequate control [Unknown]
  - Drug ineffective for unapproved indication [Unknown]
  - Off label use [Unknown]
